FAERS Safety Report 5923997-7 (Version None)
Quarter: 2008Q4

REPORT INFORMATION
  Report Type: 
  Country: None (occurrence: None)
  Receive Date: 20081020
  Receipt Date: 20081009
  Transmission Date: 20090506
  Serious: Yes (Other)
  Sender: FDA-Public Use
  Company Number: PHHY2008DE24295

PATIENT
  Sex: Male

DRUGS (1)
  1. RITALIN LA [Suspect]
     Route: 048

REACTIONS (2)
  - AGGRESSION [None]
  - AUTISM [None]
